FAERS Safety Report 5186504-5 (Version None)
Quarter: 2006Q4

REPORT INFORMATION
  Report Type: 
  Country: None (occurrence: None)
  Receive Date: 20061213
  Receipt Date: 20061201
  Transmission Date: 20070319
  Serious: Yes (Other)
  Sender: FDA-Public Use
  Company Number: GXKR2006GB07804

PATIENT
  Age: 85 Year
  Sex: Female

DRUGS (17)
  1. CLARITHROMYCIN [Suspect]
     Indication: LOWER RESPIRATORY TRACT INFECTION
     Dosage: 500 MG, ORAL
     Route: 048
     Dates: start: 20061020, end: 20061021
  2. ALLOPURINOL [Concomitant]
  3. AMITRIPTYLINE HCL [Concomitant]
  4. ASPIRIN [Concomitant]
  5. BISOPROLOL FUMARATE [Concomitant]
  6. CARBOCISTEINE                (CARBOCISTEINE) [Concomitant]
  7. CLARITHROMYCIN [Concomitant]
  8. FUROSEMIDE [Concomitant]
  9. HYPROMELLOSE                  (HYPROMELLOSE) [Concomitant]
  10. ISOSORBIDE MONONITRATE [Concomitant]
  11. LACTULOSE [Concomitant]
  12. LOSARTAN POSTASSIUM [Concomitant]
  13. ACETAMINOPHEN [Concomitant]
  14. RANITIDINE [Concomitant]
  15. SENNA               (SENNA, SENNA ALEXANDRINA) [Concomitant]
  16. SIMVASTATIN [Concomitant]
  17. TRAMADOL HCL [Concomitant]

REACTIONS (3)
  - DIARRHOEA [None]
  - PYREXIA [None]
  - VOMITING [None]
